FAERS Safety Report 15089914 (Version 1)
Quarter: 2018Q2

REPORT INFORMATION
  Report Type: Spontaneous
  Country: EG (occurrence: EG)
  Receive Date: 20180629
  Receipt Date: 20180629
  Transmission Date: 20180711
  Serious: Yes (Death, Hospitalization, Other)
  Sender: FDA-Public Use
  Company Number: PHHY2018EG031331

PATIENT
  Sex: Male

DRUGS (2)
  1. ENTRESTO [Suspect]
     Active Substance: SACUBITRIL\VALSARTAN
     Indication: ISCHAEMIC CARDIOMYOPATHY
  2. ENTRESTO [Suspect]
     Active Substance: SACUBITRIL\VALSARTAN
     Indication: CARDIAC FAILURE
     Dosage: 200 MG, BID
     Route: 065

REACTIONS (6)
  - Cardiac failure congestive [Unknown]
  - Mitral valve incompetence [Unknown]
  - Dyspnoea [Unknown]
  - Atrioventricular block [Unknown]
  - Ejection fraction decreased [Unknown]
  - Death [Fatal]

NARRATIVE: CASE EVENT DATE: 201804
